FAERS Safety Report 5811261-6 (Version None)
Quarter: 2008Q3

REPORT INFORMATION
  Report Type: 
  Country: None (occurrence: None)
  Receive Date: 20080710
  Receipt Date: 20080626
  Transmission Date: 20090109
  Serious: Yes (Other)
  Sender: FDA-Public Use
  Company Number: TPH-00068

PATIENT
  Age: 17 Year
  Sex: Female

DRUGS (2)
  1. TRIQUILAR [Suspect]
     Indication: ORAL CONTRACEPTION
     Dosage: ORAL, ORAL
     Route: 048
     Dates: start: 20060101, end: 20080101
  2. TRIQUILAR [Suspect]
     Indication: ORAL CONTRACEPTION
     Dosage: ORAL, ORAL
     Route: 048
     Dates: start: 20080613

REACTIONS (2)
  - EPILEPSY [None]
  - GENITAL HAEMORRHAGE [None]
